FAERS Safety Report 23289116 (Version 1)
Quarter: 2023Q4

REPORT INFORMATION
  Report Type: Spontaneous
  Country: GB (occurrence: GB)
  Receive Date: 20231212
  Receipt Date: 20231212
  Transmission Date: 20240110
  Serious: Yes (Other)
  Sender: FDA-Public Use
  Company Number: None

PATIENT
  Age: 55 Year
  Sex: Female

DRUGS (2)
  1. ARANESP [Suspect]
     Active Substance: DARBEPOETIN ALFA
     Indication: Product used for unknown indication
     Dosage: 40MICROGRAMS/0.4ML FOR PFS;
     Route: 065
  2. METHOTREXATE [Suspect]
     Active Substance: METHOTREXATE
     Indication: Product used for unknown indication
     Dosage: ARANESP 40MICROGRAMS/0.4ML FOR INJECTION PFS; ;
     Route: 065

REACTIONS (3)
  - Lower respiratory tract infection [Unknown]
  - Arthralgia [Unknown]
  - Abdominal discomfort [Unknown]
